FAERS Safety Report 23250547 (Version 1)
Quarter: 2023Q4

REPORT INFORMATION
  Report Type: Spontaneous
  Country: US (occurrence: None)
  Receive Date: 20231130
  Receipt Date: 20231130
  Transmission Date: 20240109
  Serious: Yes (Life-Threatening)
  Sender: FDA-Public Use
  Company Number: None

PATIENT
  Age: 43 Year
  Sex: Female
  Weight: 126 kg

DRUGS (1)
  1. MONTELUKAST [Suspect]
     Active Substance: MONTELUKAST SODIUM
     Indication: Asthma
     Dates: start: 20191015, end: 20200615

REACTIONS (9)
  - Depression [None]
  - Anger [None]
  - Hostility [None]
  - Abnormal behaviour [None]
  - Feeling cold [None]
  - Crying [None]
  - Emotional distress [None]
  - Suicidal ideation [None]
  - Screaming [None]

NARRATIVE: CASE EVENT DATE: 20191015
